FAERS Safety Report 13282270 (Version 1)
Quarter: 2017Q1

REPORT INFORMATION
  Report Type: Spontaneous
  Country: US (occurrence: US)
  Receive Date: 20170301
  Receipt Date: 20170301
  Transmission Date: 20170428
  Serious: No
  Sender: FDA-Public Use
  Company Number: US-PFIZER INC-2017083690

PATIENT
  Sex: Female

DRUGS (1)
  1. RELPAX [Suspect]
     Active Substance: ELETRIPTAN HYDROBROMIDE
     Dosage: UNK

REACTIONS (7)
  - Decreased appetite [Unknown]
  - Eye movement disorder [Unknown]
  - Dizziness [Unknown]
  - Pain [Unknown]
  - Pallor [Unknown]
  - Insomnia [Unknown]
  - Migraine [Unknown]
